FAERS Safety Report 8103283-X (Version None)
Quarter: 2012Q1

REPORT INFORMATION
  Report Type: 
  Country: None (occurrence: None)
  Receive Date: 20120201
  Receipt Date: 20120117
  Transmission Date: 20120608
  Serious: Yes (Other)
  Sender: FDA-Public Use
  Company Number: NZ-MYLANLABS-2012S1002256

PATIENT
  Age: 64 Year
  Sex: Female

DRUGS (10)
  1. COZAAR [Concomitant]
     Indication: BLOOD PRESSURE
     Route: 048
     Dates: end: 20111109
  2. ALANASE [Concomitant]
     Indication: PRODUCT USED FOR UNKNOWN INDICATION
     Dosage: 1-2 SPRAYS TWICE DAILY
     Route: 045
  3. POTASSIUM CHLORIDE [Concomitant]
     Indication: PRODUCT USED FOR UNKNOWN INDICATION
     Route: 048
  4. CODEINE SULFATE [Concomitant]
     Indication: PRODUCT USED FOR UNKNOWN INDICATION
     Route: 048
     Dates: start: 20120117
  5. ACETAMINOPHEN [Concomitant]
     Indication: PRODUCT USED FOR UNKNOWN INDICATION
     Route: 048
  6. FUROSEMIDE [Concomitant]
     Indication: PRODUCT USED FOR UNKNOWN INDICATION
     Route: 048
  7. SPIRONOLACTONE [Concomitant]
     Indication: PRODUCT USED FOR UNKNOWN INDICATION
     Route: 048
  8. LOSARTAN POTASSIUM [Suspect]
     Indication: BLOOD PRESSURE INCREASED
     Route: 048
     Dates: start: 20111110, end: 20111112
  9. ASPIRIN [Concomitant]
     Indication: PRODUCT USED FOR UNKNOWN INDICATION
     Route: 048
  10. DILTIAZEM HCL [Concomitant]
     Indication: PRODUCT USED FOR UNKNOWN INDICATION
     Route: 048

REACTIONS (6)
  - FEELING ABNORMAL [None]
  - GAIT DISTURBANCE [None]
  - VISION BLURRED [None]
  - DIZZINESS [None]
  - CONFUSIONAL STATE [None]
  - VISUAL IMPAIRMENT [None]
